FAERS Safety Report 15231335 (Version 1)
Quarter: 2018Q3

REPORT INFORMATION
  Report Type: Spontaneous
  Country: US (occurrence: US)
  Receive Date: 20180707
  Receipt Date: 20180707
  Transmission Date: 20181010
  Serious: Yes (Hospitalization)
  Sender: FDA-Public Use
  Company Number: None

PATIENT
  Age: 6 Year
  Sex: Female
  Weight: 27.8 kg

DRUGS (18)
  1. CYTARABINE. [Suspect]
     Active Substance: CYTARABINE
     Dates: end: 20170818
  2. ONCASPAR [Suspect]
     Active Substance: PEGASPARGASE
     Dates: end: 20170811
  3. VINCRISTINE SULFATE. [Suspect]
     Active Substance: VINCRISTINE SULFATE
     Dates: end: 20170818
  4. AMLODIPINE [Concomitant]
     Active Substance: AMLODIPINE BESYLATE
  5. MORPHINE [Concomitant]
     Active Substance: MORPHINE
  6. ONDASETRON [Concomitant]
     Active Substance: ONDANSETRON
  7. RANITIDINE. [Concomitant]
     Active Substance: RANITIDINE
  8. GRAVOL [Concomitant]
     Active Substance: DIMENHYDRINATE
  9. MERCAPTOPURINE. [Suspect]
     Active Substance: MERCAPTOPURINE
     Dates: end: 20170810
  10. METHOTREXATE. [Suspect]
     Active Substance: METHOTREXATE
     Dates: end: 20170818
  11. CEFAZOLIN [Concomitant]
     Active Substance: CEFAZOLIN
  12. LACTULOSE. [Concomitant]
     Active Substance: LACTULOSE
  13. NIFEDIPINE. [Concomitant]
     Active Substance: NIFEDIPINE
  14. DIMENHYDRINATE. [Concomitant]
     Active Substance: DIMENHYDRINATE
  15. SEPTRA [Concomitant]
     Active Substance: SULFAMETHOXAZOLE\TRIMETHOPRIM
  16. HYDROCORTISONE. [Suspect]
     Active Substance: HYDROCORTISONE
     Dates: end: 20170818
  17. ACETAMIONOPHEN [Concomitant]
     Active Substance: ACETAMINOPHEN
  18. CYCLOPHOSHAMIDE [Suspect]
     Active Substance: CYCLOPHOSPHAMIDE
     Dates: end: 20170728

REACTIONS (2)
  - Bacteraemia [None]
  - Klebsiella test positive [None]

NARRATIVE: CASE EVENT DATE: 20170819
